FAERS Safety Report 17855047 (Version 1)
Quarter: 2020Q2

REPORT INFORMATION
  Report Type: Spontaneous
  Country: US (occurrence: US)
  Receive Date: 20200602
  Receipt Date: 20200602
  Transmission Date: 20200714
  Serious: Yes (Hospitalization)
  Sender: FDA-Public Use
  Company Number: None

PATIENT
  Sex: Female

DRUGS (5)
  1. VITAMIN D [Concomitant]
     Active Substance: VITAMIN D NOS
  2. SILDENAFIL 20MG [Suspect]
     Active Substance: SILDENAFIL
     Indication: PULMONARY HYPERTENSION
     Route: 048
     Dates: start: 20190826
  3. BUMETANIDE. [Concomitant]
     Active Substance: BUMETANIDE
  4. LOPERAMIDE [Concomitant]
     Active Substance: LOPERAMIDE
  5. LISINOPRIL. [Concomitant]
     Active Substance: LISINOPRIL

REACTIONS (1)
  - Rehabilitation therapy [None]
